FAERS Safety Report 5271900-8 (Version None)
Quarter: 2007Q1

REPORT INFORMATION
  Report Type: 
  Country: None (occurrence: None)
  Receive Date: 20070316
  Receipt Date: 20070301
  Transmission Date: 20070707
  Serious: Yes (Other)
  Sender: FDA-Public Use
  Company Number: S07-FRA-01085-01

PATIENT
  Age: 60 Year
  Sex: Female

DRUGS (11)
  1. SEROPLEX (ESCITALOPRAM) [Suspect]
     Indication: MAJOR DEPRESSION
     Dosage: 10 MG QD PO
     Route: 048
     Dates: start: 20040101, end: 20060401
  2. SEROPLEX (ESCITALOPRAM) [Suspect]
     Indication: MAJOR DEPRESSION
     Dosage: 10 MG QD PO
     Route: 048
     Dates: start: 20060901, end: 20061201
  3. PREDNISONE [Concomitant]
  4. ESTRADIOL [Concomitant]
  5. ACTONEL [Concomitant]
  6. INEXIUM (ESOMEPRAZOLE) [Concomitant]
  7. SEROPLEX (ESCITALOPRAM) [Suspect]
     Indication: MAJOR DEPRESSION
     Dosage: 10 MG QD PO
     Route: 048
     Dates: start: 20070301
  8. CACIT [Concomitant]
  9. ZOLPIDEM TARTRATE [Concomitant]
  10. METEOXANE [Concomitant]
  11. SEROPLEX (ESCITALOPRAM) [Suspect]
     Indication: MAJOR DEPRESSION
     Dosage: 10 MG QD PO
     Route: 048
     Dates: start: 20070301

REACTIONS (7)
  - ALANINE AMINOTRANSFERASE INCREASED [None]
  - ASPARTATE AMINOTRANSFERASE INCREASED [None]
  - BLOOD ALKALINE PHOSPHATASE INCREASED [None]
  - GAMMA-GLUTAMYLTRANSFERASE INCREASED [None]
  - POLYMYALGIA RHEUMATICA [None]
  - TRANSAMINASES INCREASED [None]
  - VIRAL INFECTION [None]
